FAERS Safety Report 5794924-0 (Version None)
Quarter: 2008Q2

REPORT INFORMATION
  Report Type: 
  Country: None (occurrence: None)
  Receive Date: 20080630
  Receipt Date: 20080625
  Transmission Date: 20081010
  Serious: Yes (Hospitalization)
  Sender: FDA-Public Use
  Company Number: US-GILEAD-2008-0017045

PATIENT
  Sex: Male
  Weight: 120.31 kg

DRUGS (12)
  1. LETAIRIS [Suspect]
     Indication: PULMONARY ARTERIAL HYPERTENSION
     Route: 048
  2. LETAIRIS [Suspect]
     Route: 048
     Dates: start: 20080401
  3. LEVAQUIN [Concomitant]
  4. DELTASONE [Concomitant]
  5. SPIRIVA [Concomitant]
     Route: 055
  6. ADVAIR DISKUS 100/50 [Concomitant]
     Dosage: 250/50
     Route: 055
  7. XOPENEX HFA AER [Concomitant]
     Route: 055
  8. PLAVIX [Concomitant]
     Route: 048
  9. LANTUS [Concomitant]
  10. TOPROL-XL [Concomitant]
     Route: 048
  11. METFORMIN [Concomitant]
     Route: 048
  12. ACIPHEX [Concomitant]
     Route: 048

REACTIONS (2)
  - FLUID RETENTION [None]
  - PULMONARY OEDEMA [None]
